FAERS Safety Report 21097874 (Version 5)
Quarter: 2022Q4

REPORT INFORMATION
  Report Type: Report from Study
  Country: US (occurrence: US)
  Receive Date: 20220719
  Receipt Date: 20221206
  Transmission Date: 20230112
  Serious: Yes (Other)
  Sender: FDA-Public Use
  Company Number: US-BRISTOL-MYERS SQUIBB COMPANY-2022-070448

PATIENT
  Age: 59 Year
  Sex: Female
  Weight: 125.1 kg

DRUGS (6)
  1. POMALYST [Suspect]
     Active Substance: POMALIDOMIDE
     Indication: Plasma cell myeloma
     Dosage: 1 CAPSULE DAILY ON DAYS 1 THROUGH 21 EVERY 28 DAYS?BATCH NUMBER: C2520B; EXPIRY DATE: 31-JAN-2026
     Route: 048
     Dates: start: 20211101
  2. POMALYST [Suspect]
     Active Substance: POMALIDOMIDE
     Route: 048
  3. POMALYST [Suspect]
     Active Substance: POMALIDOMIDE
     Route: 048
     Dates: start: 20211101
  4. DEXAMETHASONE [Concomitant]
     Active Substance: DEXAMETHASONE
     Indication: Product used for unknown indication
     Route: 065
  5. VITAMIN B12 [Concomitant]
     Active Substance: CYANOCOBALAMIN
     Indication: Product used for unknown indication
     Route: 065
  6. REVLIMID [Concomitant]
     Active Substance: LENALIDOMIDE
     Indication: Product used for unknown indication
     Route: 065

REACTIONS (7)
  - Clostridium difficile infection [Unknown]
  - Cystitis [Recovered/Resolved]
  - Hyperhidrosis [Unknown]
  - COVID-19 [Unknown]
  - Lung disorder [Unknown]
  - Urinary tract infection [Unknown]
  - Sinus disorder [Unknown]

NARRATIVE: CASE EVENT DATE: 20220922
